FAERS Safety Report 14970015 (Version 2)
Quarter: 2018Q3

REPORT INFORMATION
  Report Type: Report from Study
  Country: DE (occurrence: DE)
  Receive Date: 20180604
  Receipt Date: 20180903
  Transmission Date: 20181010
  Serious: Yes (Hospitalization)
  Sender: FDA-Public Use
  Company Number: DE-PFIZER INC-2018223847

PATIENT
  Age: 83 Year
  Sex: Female

DRUGS (10)
  1. ORENCIA [Concomitant]
     Active Substance: ABATACEPT
     Dosage: 125 MG, UNK
     Dates: start: 201305, end: 201607
  2. ORENCIA [Concomitant]
     Active Substance: ABATACEPT
     Dosage: UNK
     Dates: start: 201610, end: 201610
  3. HUMIRA [Suspect]
     Active Substance: ADALIMUMAB
     Indication: RHEUMATOID ARTHRITIS
     Dosage: 40 MG,EVERY 2 WEEKS
     Route: 058
     Dates: start: 20170621, end: 201709
  4. METHOTREXATE SODIUM. [Suspect]
     Active Substance: METHOTREXATE SODIUM
     Dosage: 10 MG, WEEKLY
  5. MABTHERA [Concomitant]
     Active Substance: RITUXIMAB
     Dosage: UNK
     Dates: start: 201212
  6. ORENCIA [Concomitant]
     Active Substance: ABATACEPT
     Dosage: UNK
     Dates: start: 201802
  7. SIMPONI [Concomitant]
     Active Substance: GOLIMUMAB
     Dosage: 50 MG, UNK
     Dates: start: 201101, end: 201110
  8. ENBREL [Concomitant]
     Active Substance: ETANERCEPT
     Dosage: 50 MG, UNK
     Dates: start: 201607, end: 201610
  9. MABTHERA [Concomitant]
     Active Substance: RITUXIMAB
     Dosage: 1000 DF, UNK
     Dates: start: 201207
  10. ROACTEMRA [Concomitant]
     Active Substance: TOCILIZUMAB
     Dosage: 640 MG, UNK
     Dates: start: 201110, end: 201111

REACTIONS (1)
  - Cardiomyopathy [Not Recovered/Not Resolved]

NARRATIVE: CASE EVENT DATE: 20170829
